FAERS Safety Report 8386234-2 (Version None)
Quarter: 2012Q2

REPORT INFORMATION
  Report Type: 
  Country: None (occurrence: None)
  Receive Date: 20120525
  Receipt Date: 20120518
  Transmission Date: 20120825
  Serious: Yes (Other)
  Sender: FDA-Public Use
  Company Number: US-PFIZER INC-2012121493

PATIENT
  Sex: Female

DRUGS (6)
  1. LYRICA [Suspect]
     Indication: NEURALGIA
     Dosage: 100 MG, 3X/DAY
     Route: 048
  2. KADIAN [Concomitant]
     Dosage: UNK
  3. ALPRAZOLAM [Concomitant]
     Indication: MUSCLE SPASMS
     Dosage: 1 MG, 3X/DAY
  4. LYRICA [Suspect]
     Indication: MULTIPLE SCLEROSIS
     Dosage: 150 MG, 2X/DAY
     Route: 048
     Dates: start: 20120101, end: 20120101
  5. LYRICA [Suspect]
     Indication: FIBROMYALGIA
     Dosage: 150 MG, 3X/DAY
     Route: 048
     Dates: start: 20120101
  6. NEURONTIN [Suspect]
     Indication: NEURALGIA
     Dosage: 600 MG, 3X/DAY
     Route: 048
     Dates: end: 20120101

REACTIONS (3)
  - JOINT SWELLING [None]
  - MULTIPLE SCLEROSIS [None]
  - VISION BLURRED [None]
